FAERS Safety Report 4916003-4 (Version None)
Quarter: 2006Q1

REPORT INFORMATION
  Report Type: 
  Country: None (occurrence: None)
  Receive Date: 20060217
  Receipt Date: 20050301
  Transmission Date: 20060701
  Serious: Yes (Other)
  Sender: FDA-Public Use
  Company Number: BE-ABBOTT-05P-013-0292740-00

PATIENT
  Sex: Male

DRUGS (2)
  1. HUMIRA [Suspect]
     Indication: RHEUMATOID ARTHRITIS
     Route: 058
     Dates: start: 20050203, end: 20050217
  2. PIROXICAM [Concomitant]
     Indication: DRUG USE FOR UNKNOWN INDICATION

REACTIONS (6)
  - FATIGUE [None]
  - GENERALISED ERYTHEMA [None]
  - LIP ULCERATION [None]
  - MOUTH ULCERATION [None]
  - PHARYNGEAL ULCERATION [None]
  - PRURITUS GENERALISED [None]
